FAERS Safety Report 13387526 (Version 1)
Quarter: 2017Q1

REPORT INFORMATION
  Report Type: Spontaneous
  Country: FR (occurrence: FR)
  Receive Date: 20170330
  Receipt Date: 20170330
  Transmission Date: 20170429
  Serious: Yes (Other)
  Sender: FDA-Public Use
  Company Number: FR-ELI_LILLY_AND_COMPANY-FR201703007697

PATIENT
  Age: 35 Year
  Sex: Female

DRUGS (1)
  1. ZYPREXA [Suspect]
     Active Substance: OLANZAPINE
     Indication: HALLUCINATION, AUDITORY
     Dosage: 5 MG, QD
     Route: 048
     Dates: start: 201610, end: 20170301

REACTIONS (3)
  - Weight increased [Not Recovered/Not Resolved]
  - Hunger [Unknown]
  - Hyperphagia [Unknown]

NARRATIVE: CASE EVENT DATE: 201610
